FAERS Safety Report 10579158 (Version 4)
Quarter: 2015Q1

REPORT INFORMATION
  Report Type: Report from Study
  Country: US (occurrence: US)
  Receive Date: 20141112
  Receipt Date: 20150330
  Transmission Date: 20150720
  Serious: Yes (Hospitalization)
  Sender: FDA-Public Use
  Company Number: US-ACTELION-A-US2014-108009

PATIENT
  Age: 72 Year
  Sex: Female

DRUGS (2)
  1. VENTAVIS [Suspect]
     Active Substance: ILOPROST
     Indication: PULMONARY HYPERTENSION
     Dosage: 5 MCG, 6-9 X DAILY
     Route: 055
     Dates: start: 20070424
  2. REVATIO [Concomitant]
     Active Substance: SILDENAFIL CITRATE

REACTIONS (12)
  - Nasopharyngitis [Unknown]
  - Body temperature decreased [Unknown]
  - Intestinal obstruction [Unknown]
  - Peripheral coldness [Unknown]
  - Hypotension [Unknown]
  - Pyrexia [Unknown]
  - Hypoaesthesia [Unknown]
  - Hyperhidrosis [Unknown]
  - Feeling cold [Unknown]
  - Abdominal pain upper [Unknown]
  - Dysgeusia [Unknown]
  - Presyncope [Unknown]

NARRATIVE: CASE EVENT DATE: 20141017
